FAERS Safety Report 13610566 (Version 1)
Quarter: 2017Q2

REPORT INFORMATION
  Report Type: Spontaneous
  Country: FR (occurrence: FR)
  Receive Date: 20170605
  Receipt Date: 20170605
  Transmission Date: 20170830
  Serious: Yes (Life-Threatening, Hospitalization)
  Sender: FDA-Public Use
  Company Number: FR-PFIZER INC-2017238719

PATIENT
  Age: 46 Year
  Sex: Male

DRUGS (1)
  1. XANAX [Suspect]
     Active Substance: ALPRAZOLAM
     Dosage: 300 DF, SINGLE
     Route: 048
     Dates: start: 20170509, end: 20170509

REACTIONS (4)
  - Coma [Recovered/Resolved]
  - Pulmonary embolism [Recovering/Resolving]
  - Hypoventilation [Recovered/Resolved]
  - Intentional overdose [Recovered/Resolved]

NARRATIVE: CASE EVENT DATE: 20170509
